FAERS Safety Report 17468429 (Version 1)
Quarter: 2020Q1

REPORT INFORMATION
  Report Type: Spontaneous
  Country: IT (occurrence: IT)
  Receive Date: 20200227
  Receipt Date: 20200227
  Transmission Date: 20200409
  Serious: Yes (Other)
  Sender: FDA-Public Use
  Company Number: IT-MYLANLABS-2020M1020812

PATIENT
  Sex: Male

DRUGS (2)
  1. CARDIOASPIRINA [Concomitant]
     Active Substance: ASPIRIN
     Indication: PRODUCT USED FOR UNKNOWN INDICATION
     Dosage: UNK
     Route: 048
     Dates: end: 201905
  2. CLOPIDOGREL [Suspect]
     Active Substance: CLOPIDOGREL BISULFATE
     Indication: PRODUCT USED FOR UNKNOWN INDICATION
     Dosage: 75 MILLIGRAM, QD (75 MG ONCE PER DAY)
     Route: 048
     Dates: start: 201905, end: 202002

REACTIONS (5)
  - Blood iron decreased [Not Recovered/Not Resolved]
  - Gastrointestinal ulcer haemorrhage [Unknown]
  - Thrombocytopenia [Not Recovered/Not Resolved]
  - Drug intolerance [Unknown]
  - Epistaxis [Not Recovered/Not Resolved]

NARRATIVE: CASE EVENT DATE: 201905
